FAERS Safety Report 6027328-6 (Version None)
Quarter: 2009Q1

REPORT INFORMATION
  Report Type: 
  Country: None (occurrence: None)
  Receive Date: 20090105
  Receipt Date: 20081229
  Transmission Date: 20090719
  Serious: Yes (Other)
  Sender: FDA-Public Use
  Company Number: B0547340A

PATIENT
  Age: 58 Year
  Sex: Male
  Weight: 47 kg

DRUGS (6)
  1. VALTREX [Suspect]
     Indication: HERPES ZOSTER
     Dosage: 500MG THREE TIMES PER DAY
     Route: 048
     Dates: start: 20081118, end: 20081118
  2. MUCOSTA [Concomitant]
     Dosage: 3UNIT PER DAY
     Route: 048
     Dates: start: 20080101
  3. ALFAROL [Concomitant]
     Dosage: .25MCG PER DAY
     Route: 048
  4. CALTAN [Concomitant]
     Dosage: 6UNIT PER DAY
     Route: 048
  5. BLOPRESS [Concomitant]
     Dosage: 4MG PER DAY
     Route: 048
  6. TAKEPRON [Concomitant]
     Dosage: 15MG PER DAY
     Route: 048

REACTIONS (10)
  - ABDOMINAL DISCOMFORT [None]
  - CONVULSION [None]
  - DELIRIUM [None]
  - DELUSION [None]
  - DIZZINESS [None]
  - HALLUCINATION [None]
  - HEADACHE [None]
  - NAUSEA [None]
  - RESTLESSNESS [None]
  - VOMITING [None]
